FAERS Safety Report 9143685 (Version 1)
Quarter: 2013Q1

REPORT INFORMATION
  Report Type: Spontaneous
  Country: FR (occurrence: FR)
  Receive Date: 20130306
  Receipt Date: 20130306
  Transmission Date: 20140127
  Serious: Yes (Life-Threatening)
  Sender: FDA-Public Use
  Company Number: FR-ROCHE-1197769

PATIENT
  Age: 46 Year
  Sex: Male

DRUGS (9)
  1. CELLCEPT [Suspect]
     Indication: PRODUCT USED FOR UNKNOWN INDICATION
     Route: 048
     Dates: start: 20081213, end: 20090611
  2. LANZOR [Suspect]
     Indication: PROPHYLAXIS
     Route: 048
     Dates: end: 20090611
  3. PROGRAF [Concomitant]
  4. CORTANCYL [Concomitant]
  5. HYDROCORTISONE [Concomitant]
  6. TENORMINE [Concomitant]
     Route: 065
  7. NEORECORMON [Concomitant]
     Route: 065
  8. MIMPARA [Concomitant]
  9. ATARAX [Concomitant]
     Route: 065

REACTIONS (1)
  - Histiocytosis haematophagic [Recovered/Resolved]
